FAERS Safety Report 7039198-8 (Version None)
Quarter: 2010Q4

REPORT INFORMATION
  Report Type: 
  Country: None (occurrence: None)
  Receive Date: 20101012
  Receipt Date: 20101001
  Transmission Date: 20110411
  Serious: Yes (Hospitalization)
  Sender: FDA-Public Use
  Company Number: JP-SANOFI-AVENTIS-2010SA059032

PATIENT
  Age: 65 Year
  Sex: Male

DRUGS (6)
  1. OXALIPLATIN [Suspect]
     Indication: LARGE INTESTINE CARCINOMA
     Route: 041
  2. OXALIPLATIN [Suspect]
     Route: 041
     Dates: start: 20100201, end: 20100201
  3. XELODA [Suspect]
     Indication: LARGE INTESTINE CARCINOMA
     Route: 048
  4. XELODA [Suspect]
     Route: 048
     Dates: start: 20100201, end: 20100201
  5. AVASTIN [Suspect]
     Indication: LARGE INTESTINE CARCINOMA
     Route: 041
  6. AVASTIN [Suspect]
     Route: 041
     Dates: start: 20100201, end: 20100201

REACTIONS (4)
  - BACK PAIN [None]
  - DISSEMINATED INTRAVASCULAR COAGULATION [None]
  - PAIN [None]
  - PROTEIN URINE PRESENT [None]
